FAERS Safety Report 5568584-8 (Version None)
Quarter: 2007Q4

REPORT INFORMATION
  Report Type: 
  Country: None (occurrence: None)
  Receive Date: 20071220
  Receipt Date: 20071207
  Transmission Date: 20080405
  Serious: Yes (Hospitalization)
  Sender: FDA-Public Use
  Company Number: US-MERCK-0712USA02295

PATIENT
  Age: 69 Year
  Sex: Female

DRUGS (5)
  1. EMEND [Suspect]
     Indication: PROPHYLAXIS OF NAUSEA AND VOMITING
     Route: 048
     Dates: start: 20071101
  2. EMEND [Suspect]
     Route: 048
     Dates: start: 20071101
  3. [THERAPY UNSPECIFIED] [Concomitant]
     Indication: DIABETES MELLITUS
     Route: 065
  4. GLUCOPHAGE [Concomitant]
     Route: 065
  5. ANTIMICROBIAL (UNSPECIFIED) [Concomitant]
     Route: 065

REACTIONS (3)
  - DIARRHOEA [None]
  - INTESTINAL FUNCTIONAL DISORDER [None]
  - PAIN [None]
